FAERS Safety Report 9815280 (Version 9)
Quarter: 2014Q2

REPORT INFORMATION
  Report Type: Report from Study
  Country: PL (occurrence: PL)
  Receive Date: 20140114
  Receipt Date: 20140528
  Transmission Date: 20141212
  Serious: Yes (Hospitalization, Other)
  Sender: FDA-Public Use
  Company Number: PL-AMGEN-POLCT2014001885

PATIENT
  Age: 65 Year
  Sex: Female

DRUGS (15)
  1. ETANERCEPT [Suspect]
     Indication: RHEUMATOID ARTHRITIS
     Dosage: 50 MG, WEEKLY
     Route: 058
     Dates: start: 20120529, end: 20131128
  2. METHOTREXATE [Concomitant]
     Indication: RHEUMATOID ARTHRITIS
     Dosage: 10 MG,1 IN 1 WK
     Route: 048
     Dates: start: 201202, end: 20121101
  3. METHOTREXATE [Concomitant]
     Dosage: 15 MG,1 IN 1 WK
     Route: 048
     Dates: start: 20121101, end: 20121128
  4. METHOTREXATE [Concomitant]
     Dosage: 20 MG,1 IN 1 WK
     Route: 048
     Dates: start: 20121128
  5. CALCIUM [Concomitant]
     Dosage: UNK
  6. MAGNESIUM [Concomitant]
     Dosage: UNK
  7. SIMVASTEROL [Concomitant]
     Indication: HYPERLIPIDAEMIA
     Dosage: 20 MG, (20 MG,1 IN 1 D)
     Route: 048
     Dates: start: 200305
  8. ACETYLSALICYLIC ACID [Concomitant]
     Indication: CORONARY ARTERY DISEASE
     Dosage: 75 MG (75 MG,1 IN 1 D)
     Route: 048
     Dates: start: 200305
  9. CHOLECALCIFEROL [Concomitant]
     Indication: OSTEOPOROSIS
     Dosage: 1500 IU (1500 IU,1 IN 1 D)
     Route: 048
     Dates: start: 201201
  10. CHOLECALCIFEROL [Concomitant]
     Dosage: 800 IU (800 IU,1 IN 1 D)
     Route: 048
     Dates: start: 201201
  11. FOLIC ACID [Concomitant]
     Dosage: 15 MG,1 IN 1 WK
     Route: 048
     Dates: start: 200812
  12. PANTOPRAZOLE [Concomitant]
     Dosage: 20 MG, 1X/DAY
     Route: 048
     Dates: start: 201002, end: 20130221
  13. PANTOPRAZOLE [Concomitant]
     Dosage: 40 MG, 1X/DAY
     Route: 048
     Dates: start: 20130222
  14. TELMISARTAN [Concomitant]
     Indication: HYPERTENSION
     Dosage: 40 MG (40 MG,1 IN 1 D)
     Route: 048
     Dates: start: 20130709
  15. NEBIVOLOL [Concomitant]
     Indication: HYPERTENSION
     Dosage: 2.5 MG (2.5 MG,1 IN 1 D)
     Route: 048
     Dates: start: 20130709

REACTIONS (2)
  - Lung adenocarcinoma [Recovered/Resolved with Sequelae]
  - Pulmonary mass [Recovered/Resolved]
